FAERS Safety Report 19854700 (Version 1)
Quarter: 2021Q3

REPORT INFORMATION
  Report Type: Spontaneous
  Country: US (occurrence: US)
  Receive Date: 20210917
  Receipt Date: 20210917
  Transmission Date: 20211014
  Serious: Yes (Other)
  Sender: FDA-Public Use
  Company Number: None

PATIENT
  Age: 39 Year
  Sex: Female
  Weight: 78.75 kg

DRUGS (5)
  1. METOPROLOL SUCCINATE. [Concomitant]
     Active Substance: METOPROLOL SUCCINATE
  2. AMLODIPINE 2.5 MG [Concomitant]
     Active Substance: AMLODIPINE BESYLATE
  3. CENTRUM WOMEN VITAMIN [Concomitant]
  4. PROTONIX [Concomitant]
     Active Substance: PANTOPRAZOLE SODIUM
  5. PERL DELTA 8 GUMMIES [Suspect]
     Active Substance: .DELTA.8-TETRAHYDROCANNABINOL\HERBALS
     Indication: RELAXATION THERAPY
     Dates: start: 20210915, end: 20210915

REACTIONS (7)
  - Chills [None]
  - Tremor [None]
  - Dyspnoea [None]
  - Hallucination [None]
  - Peripheral coldness [None]
  - Gait inability [None]
  - Heart rate increased [None]

NARRATIVE: CASE EVENT DATE: 20210915
